FAERS Safety Report 7919572-5 (Version None)
Quarter: 2011Q4

REPORT INFORMATION
  Report Type: 
  Country: None (occurrence: None)
  Receive Date: 20111116
  Receipt Date: 20111116
  Transmission Date: 20120403
  Serious: Yes (Hospitalization)
  Sender: FDA-Public Use
  Company Number: None

PATIENT
  Age: 51 Year
  Sex: Male
  Weight: 86.7 kg

DRUGS (2)
  1. ALLOPURINOL [Concomitant]
  2. IBUPROFEN [Suspect]
     Indication: ARTHRALGIA
     Dosage: 800MG TID PO CHRONIC
     Route: 048

REACTIONS (4)
  - MALLORY-WEISS SYNDROME [None]
  - GASTRIC ULCER [None]
  - HAEMORRHAGIC ANAEMIA [None]
  - EROSIVE OESOPHAGITIS [None]
